FAERS Safety Report 21440209 (Version 1)
Quarter: 2022Q4

REPORT INFORMATION
  Report Type: Spontaneous
  Country: US (occurrence: US)
  Receive Date: 20221011
  Receipt Date: 20221011
  Transmission Date: 20230113
  Serious: Yes (Other)
  Sender: FDA-Public Use
  Company Number: US-AMNEAL PHARMACEUTICALS-2021-AMRX-05406

PATIENT
  Age: 74 Year
  Sex: Male

DRUGS (3)
  1. LIORESAL [Suspect]
     Active Substance: BACLOFEN
     Indication: Multiple sclerosis
     Dosage: 500 ?G, \DAY (ALSO REPORTED AS APPROX 600 ?G/DAY)
     Route: 037
  2. LIORESAL [Suspect]
     Active Substance: BACLOFEN
     Indication: Muscle spasticity
  3. GABLOFEN [Suspect]
     Active Substance: BACLOFEN
     Dosage: 500 ?G, \DAY (ALSO REPORTED AS APPROX 600 ?G/DAY)

REACTIONS (2)
  - Muscle spasms [Unknown]
  - Device failure [Recovered/Resolved]

NARRATIVE: CASE EVENT DATE: 20210715
